FAERS Safety Report 23146198 (Version 2)
Quarter: 2023Q4

REPORT INFORMATION
  Report Type: Spontaneous
  Country: PL (occurrence: PL)
  Receive Date: 20231104
  Receipt Date: 20231120
  Transmission Date: 20240110
  Serious: Yes (Other)
  Sender: FDA-Public Use
  Company Number: PL-BAUSCH-BL-2023-015613

PATIENT
  Age: 53 Year
  Sex: Female

DRUGS (23)
  1. MELPHALAN [Suspect]
     Active Substance: MELPHALAN
     Indication: Hodgkin^s disease
     Dosage: UNK, CYCLICAL (DEXABEAM REGIMEN)
     Route: 065
  2. BENDAMUSTINE [Suspect]
     Active Substance: BENDAMUSTINE
     Indication: Hodgkin^s disease
     Dosage: UNK, 1 CYCLICAL (2 CYCLES OF BDG REGIMEN)
     Route: 065
  3. BLEOMYCIN\DACARBAZINE\DOXORUBICIN\VINBLASTINE [Suspect]
     Active Substance: BLEOMYCIN\DACARBAZINE\DOXORUBICIN\VINBLASTINE
     Indication: Hodgkin^s disease
     Dosage: UNK (ABVD REGIMEN)
     Route: 065
     Dates: start: 201908
  4. BLEOMYCIN [Suspect]
     Active Substance: BLEOMYCIN SULFATE
     Indication: Hodgkin^s disease
     Dosage: UNK (ABVD REGIMEN)
     Route: 065
  5. CARMUSTINE [Suspect]
     Active Substance: CARMUSTINE
     Indication: Hodgkin^s disease
     Dosage: UNK, 1 CYCLICAL (DEXABEAM REGIMEN)
     Route: 065
  6. CYTARABINE [Suspect]
     Active Substance: CYTARABINE
     Indication: Hodgkin^s disease
     Dosage: UNK UNK, 1 CYCLICAL(DEXABEAM REGIMEN )
     Route: 065
  7. DEXAMETHASONE [Suspect]
     Active Substance: DEXAMETHASONE
     Indication: Hodgkin^s disease
     Dosage: UNK, 1 CYCLICAL (DEXABEAM )
     Route: 065
  8. DEXAMETHASONE [Suspect]
     Active Substance: DEXAMETHASONE
     Dosage: UNK, 1 CYCLICAL (2 CYCLES OF BDG REGIMEN)
     Route: 065
  9. ETOPOSIDE [Suspect]
     Active Substance: ETOPOSIDE
     Indication: Hodgkin^s disease
     Dosage: UNK UNK,1 CYCLICAL (DEXABEAM REGIMEN)
     Route: 065
  10. GEMCITABINE [Suspect]
     Active Substance: GEMCITABINE
     Indication: Hodgkin^s disease
     Dosage: UNK, CYCLICAL (~2 CYCLES OF BDG REGIMEN  )
     Route: 065
  11. ICE [Suspect]
     Active Substance: MENTHOL
     Indication: Hodgkin^s disease
     Dosage: UNK (ABVD REGIMEN)
     Route: 065
  12. IFOSFAMIDE [Suspect]
     Active Substance: IFOSFAMIDE
     Indication: Hodgkin^s disease
     Dosage: UNK(ICE REGIMEN)
     Route: 065
  13. IFOSFAMIDE [Suspect]
     Active Substance: IFOSFAMIDE
     Indication: Stem cell transplant
  14. VINORELBINE [Suspect]
     Active Substance: VINORELBINE TARTRATE
     Indication: Hodgkin^s disease
     Dosage: UNK (IGEV REGIMEN)
     Route: 065
  15. VINORELBINE [Suspect]
     Active Substance: VINORELBINE TARTRATE
     Indication: Off label use
  16. VINORELBINE [Suspect]
     Active Substance: VINORELBINE TARTRATE
     Indication: Stem cell transplant
  17. PREDNISONE [Concomitant]
     Active Substance: PREDNISONE
     Indication: Granulomatosis with polyangiitis
     Dosage: UNK
     Route: 065
  18. ETOPOSIDE [Suspect]
     Active Substance: ETOPOSIDE
  19. DOXORUBICIN [Suspect]
     Active Substance: DOXORUBICIN
  20. CYCLOPHOSPHAMIDE [Suspect]
     Active Substance: CYCLOPHOSPHAMIDE
  21. VINCRISTINE [Suspect]
     Active Substance: VINCRISTINE
  22. PROCARBAZINE [Suspect]
     Active Substance: PROCARBAZINE
  23. PREDNISONE [Suspect]
     Active Substance: PREDNISONE

REACTIONS (10)
  - Multiple-drug resistance [Unknown]
  - Febrile neutropenia [Unknown]
  - Clostridium difficile infection [Unknown]
  - Bacteraemia [Unknown]
  - Aplasia [Unknown]
  - Gastrointestinal inflammation [Unknown]
  - Candida infection [Unknown]
  - Platelet disorder [Unknown]
  - Product use in unapproved indication [Unknown]
  - Off label use [Unknown]
